FAERS Safety Report 7338325-2 (Version None)
Quarter: 2011Q1

REPORT INFORMATION
  Report Type: 
  Country: None (occurrence: None)
  Receive Date: 20110308
  Receipt Date: 20110301
  Transmission Date: 20110831
  Serious: Yes (Other)
  Sender: FDA-Public Use
  Company Number: US-AMGEN-USASP2011011601

PATIENT
  Age: 66 Year
  Sex: Male

DRUGS (2)
  1. METHOTREXATE [Concomitant]
     Dates: start: 20100101
  2. ENBREL [Suspect]
     Indication: ANKYLOSING SPONDYLITIS
     Dates: start: 20100101, end: 20110225

REACTIONS (4)
  - CORONARY ARTERY OCCLUSION [None]
  - DRUG INEFFECTIVE [None]
  - VASOSPASM [None]
  - BLOOD POTASSIUM DECREASED [None]
